FAERS Safety Report 9962673 (Version 2)
Quarter: 2014Q1

REPORT INFORMATION
  Report Type: Report from Study
  Country: US (occurrence: US)
  Receive Date: 20140305
  Receipt Date: 20140305
  Transmission Date: 20141002
  Serious: No
  Sender: FDA-Public Use
  Company Number: US-ABBVIE-13P-163-1096903-00

PATIENT
  Age: 59 Year
  Sex: Male

DRUGS (7)
  1. HUMIRA [Suspect]
     Indication: COLITIS ULCERATIVE
     Dates: start: 20130108, end: 20130108
  2. HUMIRA [Suspect]
     Indication: CROHN^S DISEASE
     Dates: start: 20130122, end: 20130122
  3. HUMIRA [Suspect]
  4. BLOOD PRESSURE MEDICATION [Concomitant]
     Indication: HYPERTENSION
  5. CHOLESTEROL MEDICATION [Concomitant]
     Indication: BLOOD CHOLESTEROL
  6. CHOLESTEROL MEDICATION [Concomitant]
     Indication: BLOOD TRIGLYCERIDES
  7. PAIN MEDICATION [Concomitant]
     Indication: ARTHRALGIA

REACTIONS (3)
  - Colitis ulcerative [Unknown]
  - Drug ineffective [Unknown]
  - Drug specific antibody present [Not Recovered/Not Resolved]
